FAERS Safety Report 10458700 (Version 3)
Quarter: 2014Q4

REPORT INFORMATION
  Report Type: Spontaneous
  Country: JP (occurrence: JP)
  Receive Date: 20140917
  Receipt Date: 20141015
  Transmission Date: 20150528
  Serious: Yes (Other)
  Sender: FDA-Public Use
  Company Number: JP-JNJFOC-20140911675

PATIENT
  Age: 74 Year
  Sex: Female

DRUGS (5)
  1. TRAZENTA [Concomitant]
     Active Substance: LINAGLIPTIN
     Indication: DIABETES MELLITUS
     Route: 048
  2. RISPERDAL [Suspect]
     Active Substance: RISPERIDONE
     Indication: RESTLESSNESS
     Route: 048
     Dates: start: 2014
  3. INSULIN [Concomitant]
     Active Substance: INSULIN NOS
     Route: 065
  4. RISPERDAL [Suspect]
     Active Substance: RISPERIDONE
     Indication: RESTLESSNESS
     Route: 048
     Dates: end: 2014
  5. SEIBULE [Concomitant]
     Active Substance: MIGLITOL
     Indication: DIABETES MELLITUS
     Route: 048

REACTIONS (3)
  - Altered state of consciousness [Not Recovered/Not Resolved]
  - Product use issue [Unknown]
  - Melaena [Unknown]

NARRATIVE: CASE EVENT DATE: 201402
